FAERS Safety Report 6916817-5 (Version None)
Quarter: 2010Q3

REPORT INFORMATION
  Report Type: 
  Country: None (occurrence: None)
  Receive Date: 20100809
  Receipt Date: 20100809
  Transmission Date: 20110219
  Serious: Yes (Hospitalization)
  Sender: FDA-Public Use
  Company Number: None

PATIENT
  Sex: Male
  Weight: 79.5 kg

DRUGS (2)
  1. CISPLATIN [Suspect]
     Dosage: 38.2 MG
     Dates: end: 20100803
  2. TAXOL [Suspect]
     Dosage: 76.4 MG
     Dates: end: 20100727

REACTIONS (6)
  - ASTHENIA [None]
  - DECREASED APPETITE [None]
  - NAUSEA [None]
  - OESOPHAGEAL PAIN [None]
  - VOMITING [None]
  - WEIGHT DECREASED [None]
